FAERS Safety Report 20680658 (Version 2)
Quarter: 2022Q2

REPORT INFORMATION
  Report Type: Spontaneous
  Country: US (occurrence: US)
  Receive Date: 20220406
  Receipt Date: 20220413
  Transmission Date: 20220721
  Serious: Yes (Life-Threatening, Hospitalization)
  Sender: FDA-Public Use
  Company Number: US-TEVA-2022-US-2023669

PATIENT
  Age: 18 Year
  Sex: Male

DRUGS (10)
  1. PROPOFOL [Suspect]
     Active Substance: PROPOFOL
     Indication: Anaesthesia
     Route: 042
  2. FENTANYL [Suspect]
     Active Substance: FENTANYL
     Indication: Anaesthesia
     Route: 042
  3. REMIFENTANIL [Suspect]
     Active Substance: REMIFENTANIL
     Indication: Anaesthesia
     Route: 042
  4. DEXAMETHASONE [Concomitant]
     Active Substance: DEXAMETHASONE
     Indication: Spinal fusion surgery
     Route: 042
  5. TRANEXAMIC ACID [Concomitant]
     Active Substance: TRANEXAMIC ACID
     Indication: Spinal fusion surgery
     Route: 042
  6. METHADONE [Concomitant]
     Active Substance: METHADONE HYDROCHLORIDE
     Indication: Spinal fusion surgery
     Route: 042
  7. CEFAZOLIN [Concomitant]
     Active Substance: CEFAZOLIN
     Indication: Spinal fusion surgery
     Route: 042
  8. IODINE [Concomitant]
     Active Substance: IODINE
     Indication: Spinal fusion surgery
     Route: 061
  9. CHLORAPREP [Concomitant]
     Active Substance: CHLORHEXIDINE GLUCONATE\ISOPROPYL ALCOHOL
     Indication: Spinal fusion surgery
     Route: 061
  10. BENZOIN TINCTURE [Concomitant]
     Active Substance: BENZOIN RESIN
     Indication: Spinal fusion surgery
     Route: 061

REACTIONS (5)
  - Anaphylactic reaction [Unknown]
  - Hypoxia [Unknown]
  - Bronchospasm [Unknown]
  - Hypotension [Unknown]
  - Pulseless electrical activity [Unknown]
